FAERS Safety Report 17542552 (Version 2)
Quarter: 2020Q2

REPORT INFORMATION
  Report Type: Spontaneous
  Country: BE (occurrence: BE)
  Receive Date: 20200315
  Receipt Date: 20200425
  Transmission Date: 20200713
  Serious: Yes (Life-Threatening, Hospitalization, Other)
  Sender: FDA-Public Use
  Company Number: BE-AMGEN-BELSP2020039753

PATIENT
  Age: 69 Year
  Sex: Female
  Weight: 87 kg

DRUGS (3)
  1. KYPROLIS [Suspect]
     Active Substance: CARFILZOMIB
     Indication: PLASMA CELL MYELOMA
     Dosage: 27 MILLIGRAM/SQ. METER
     Route: 042
     Dates: start: 20161021, end: 20170110
  2. DEXAMETHASONE. [Suspect]
     Active Substance: DEXAMETHASONE
     Indication: PLASMA CELL MYELOMA
     Dosage: 20 MILLIGRAM, Q2WK
     Route: 065
     Dates: start: 20161219
  3. CYCLOPHOSPHAMIDE. [Suspect]
     Active Substance: CYCLOPHOSPHAMIDE
     Indication: PLASMA CELL MYELOMA
     Dosage: 50 MILLIGRAM, 1 X DAY 1, 21, 28
     Route: 065
     Dates: start: 20161219

REACTIONS (4)
  - Ventricular tachycardia [Recovered/Resolved]
  - Off label use [Unknown]
  - Pulmonary arterial hypertension [Recovered/Resolved]
  - Atrial fibrillation [Recovered/Resolved]

NARRATIVE: CASE EVENT DATE: 20161219
